FAERS Safety Report 9990683 (Version 1)
Quarter: 2014Q1

REPORT INFORMATION
  Report Type: Report from Study
  Country: US (occurrence: US)
  Receive Date: 20140310
  Receipt Date: 20140310
  Transmission Date: 20141002
  Serious: No
  Sender: FDA-Public Use
  Company Number: US-ABBVIE-13P-163-1134608-00

PATIENT
  Age: 11 Year
  Sex: Female

DRUGS (2)
  1. HUMIRA [Suspect]
     Indication: UVEITIS
     Route: 058
     Dates: end: 201307
  2. HUMIRA [Suspect]
     Route: 058
     Dates: start: 20130822

REACTIONS (1)
  - Ear infection [Unknown]
